FAERS Safety Report 6432202-7 (Version None)
Quarter: 2009Q4

REPORT INFORMATION
  Report Type: 
  Country: None (occurrence: None)
  Receive Date: 20091109
  Receipt Date: 20091026
  Transmission Date: 20100525
  Serious: Yes (Other)
  Sender: FDA-Public Use
  Company Number: US-MYLANLABS-2009S1018702

PATIENT
  Sex: Female
  Weight: 51.26 kg

DRUGS (17)
  1. CELEBREX [Suspect]
  2. SULINDAC TABLETS, USP [Suspect]
  3. ATENOLOL [Concomitant]
  4. BUDESONIDE [Concomitant]
  5. FISH OIL [Concomitant]
  6. FAMOTIDINE [Concomitant]
  7. FLONASE [Concomitant]
  8. NEURONTIN [Concomitant]
  9. LIDODERM [Concomitant]
  10. MELATONIN [Concomitant]
  11. PROMETHAZINE [Concomitant]
  12. CINNARIZINE [Concomitant]
  13. AMRIX [Concomitant]
  14. VALERIAAN /01561605/ [Concomitant]
  15. VENTOLIN [Concomitant]
  16. ASTELIN [Concomitant]
  17. FLUNISOLIDE [Concomitant]

REACTIONS (4)
  - ABDOMINAL PAIN [None]
  - BLOOD CHOLESTEROL ABNORMAL [None]
  - HAEMORRHAGE [None]
  - HEPATIC ENZYME ABNORMAL [None]
